FAERS Safety Report 8608323-7 (Version None)
Quarter: 2012Q3

REPORT INFORMATION
  Report Type: 
  Country: None (occurrence: None)
  Receive Date: 20120821
  Receipt Date: 20120813
  Transmission Date: 20120928
  Serious: Yes (Death)
  Sender: FDA-Public Use
  Company Number: KR-PFIZER INC-2012076601

PATIENT
  Age: 62 Year
  Sex: Male
  Weight: 62 kg

DRUGS (1)
  1. NONACOG ALFA [Suspect]
     Indication: FACTOR IX DEFICIENCY
     Dosage: 36 IU/KG (2060 IU), WEEKLY
     Route: 042
     Dates: end: 20120207

REACTIONS (2)
  - DRUG INEFFECTIVE [None]
  - CEREBRAL HAEMORRHAGE [None]
